FAERS Safety Report 5566475-X (Version None)
Quarter: 2007Q4

REPORT INFORMATION
  Report Type: 
  Country: None (occurrence: None)
  Receive Date: 20071219
  Receipt Date: 20071213
  Transmission Date: 20080405
  Serious: Yes (Death)
  Sender: FDA-Public Use
  Company Number: JP-AVENTIS-200713089JP

PATIENT
  Age: 69 Year
  Sex: Male
  Weight: 56 kg

DRUGS (11)
  1. TAXOTERE [Suspect]
     Indication: PROSTATE CANCER RECURRENT
     Route: 042
     Dates: start: 20060628, end: 20060822
  2. TAXOTERE [Suspect]
     Route: 042
     Dates: end: 20070511
  3. DEXAMETHASONE TAB [Concomitant]
     Indication: PROSTATE CANCER RECURRENT
     Route: 048
     Dates: start: 20060215, end: 20070601
  4. ESTRACYT                           /00327002/ [Concomitant]
     Route: 048
     Dates: start: 20001201, end: 20061004
  5. CHLORMADINONE ACETATE TAB [Concomitant]
     Dates: start: 20010101, end: 20021111
  6. HONVAN [Concomitant]
     Indication: PROSTATE CANCER RECURRENT
     Dates: start: 20041220, end: 20060111
  7. ETOPOSIDE [Concomitant]
     Indication: PROSTATE CANCER RECURRENT
     Dates: start: 20060111, end: 20060215
  8. PARAPLATIN [Concomitant]
     Indication: PROSTATE CANCER RECURRENT
     Dates: start: 20060628, end: 20060727
  9. UFT [Concomitant]
     Indication: PROSTATE CANCER RECURRENT
     Route: 048
     Dates: start: 20061004, end: 20061129
  10. RADIOTHERAPY [Concomitant]
     Indication: METASTASES TO BONE
     Dosage: DOSE: 40GY/TOTAL
     Dates: start: 20021021, end: 20021118
  11. RADIOTHERAPY [Concomitant]
     Dosage: DOSE: 40GY/TOTAL
     Dates: start: 20031020, end: 20031117

REACTIONS (2)
  - ACUTE MYELOID LEUKAEMIA [None]
  - PROSTATE CANCER [None]
